FAERS Safety Report 8547594-2 (Version None)
Quarter: 2012Q3

REPORT INFORMATION
  Report Type: 
  Country: None (occurrence: None)
  Receive Date: 20120727
  Receipt Date: 20120406
  Transmission Date: 20120928
  Serious: No
  Sender: FDA-Public Use
  Company Number: US-ASTRAZENECA-2012SE22940

PATIENT
  Age: 57 Year
  Sex: Female
  Weight: 57.2 kg

DRUGS (4)
  1. LYRICA [Concomitant]
     Indication: FIBROMYALGIA
  2. SIMVASTATIN [Concomitant]
     Indication: BLOOD CHOLESTEROL ABNORMAL
  3. HYDROXYZINE [Concomitant]
  4. SEROQUEL [Suspect]
     Indication: SCHIZOAFFECTIVE DISORDER
     Dosage: 200 MG TWO TIMES A DAY AND 400 MG ONCE DAILY
     Route: 048
     Dates: start: 20020101

REACTIONS (9)
  - IMMUNODEFICIENCY [None]
  - CONSTIPATION [None]
  - INFLUENZA LIKE ILLNESS [None]
  - COUGH [None]
  - HEADACHE [None]
  - INTENTIONAL DRUG MISUSE [None]
  - INFECTION [None]
  - NAUSEA [None]
  - VIRAL INFECTION [None]
